FAERS Safety Report 5272813-8 (Version None)
Quarter: 2007Q1

REPORT INFORMATION
  Report Type: 
  Country: None (occurrence: None)
  Receive Date: 20070322
  Receipt Date: 20070319
  Transmission Date: 20070707
  Serious: Yes (Death, Other)
  Sender: FDA-Public Use
  Company Number: PHEH2007US03201

PATIENT
  Age: 79 Year
  Sex: Female

DRUGS (1)
  1. FORADIL [Suspect]
     Indication: ASTHMA
     Dosage: UNK, BID
     Route: 048
     Dates: end: 20070222

REACTIONS (5)
  - ATRIAL FIBRILLATION [None]
  - BRONCHITIS [None]
  - CEREBROVASCULAR ACCIDENT [None]
  - DEATH [None]
  - HIP FRACTURE [None]
